FAERS Safety Report 12591712 (Version 1)
Quarter: 2016Q3

REPORT INFORMATION
  Report Type: Spontaneous
  Country: US (occurrence: US)
  Receive Date: 20160726
  Receipt Date: 20160726
  Transmission Date: 20161109
  Serious: No
  Sender: FDA-Public Use
  Company Number: US-UNITED THERAPEUTICS-UNT-2016-001462

PATIENT
  Age: 27 Year
  Sex: Male
  Weight: 57.6 kg

DRUGS (1)
  1. REMODULIN [Suspect]
     Active Substance: TREPROSTINIL
     Indication: PULMONARY HYPERTENSION
     Dosage: 0.0375 ?G/KG, CONTINUING
     Route: 042
     Dates: start: 20150520

REACTIONS (4)
  - Malaise [Unknown]
  - Flushing [Unknown]
  - Feeling of body temperature change [Unknown]
  - Palpitations [Unknown]

NARRATIVE: CASE EVENT DATE: 201511
